FAERS Safety Report 26197054 (Version 1)
Quarter: 2025Q4

REPORT INFORMATION
  Report Type: Spontaneous
  Country: US (occurrence: US)
  Receive Date: 20251224
  Receipt Date: 20251224
  Transmission Date: 20260117
  Serious: No
  Sender: CELLTRION
  Company Number: US-CELLTRION INC.-2025US030903

PATIENT

DRUGS (42)
  1. RITUXIMAB [Suspect]
     Active Substance: RITUXIMAB
     Indication: B-cell type acute leukaemia
     Dosage: R-HYPERCVAD REGIMEN (COMPLETED 8 CYCLES)
     Dates: start: 202209, end: 202305
  2. RITUXIMAB [Suspect]
     Active Substance: RITUXIMAB
     Dosage: R-HYPERCVAD REGIMEN (COMPLETED 8 CYCLES)
     Dates: start: 202209, end: 202305
  3. RITUXIMAB [Suspect]
     Active Substance: RITUXIMAB
     Dosage: R-HYPERCVAD REGIMEN (COMPLETED 8 CYCLES)
     Dates: start: 202209, end: 202305
  4. RITUXIMAB [Suspect]
     Active Substance: RITUXIMAB
     Dosage: R-HYPERCVAD REGIMEN (COMPLETED 8 CYCLES)
     Dates: start: 202209, end: 202305
  5. RITUXIMAB [Suspect]
     Active Substance: RITUXIMAB
     Dosage: R-HYPERCVAD REGIMEN (COMPLETED 8 CYCLES)
     Dates: start: 202209, end: 202305
  6. RITUXIMAB [Suspect]
     Active Substance: RITUXIMAB
     Dosage: R-HYPERCVAD REGIMEN (COMPLETED 8 CYCLES)
     Dates: start: 202209, end: 202305
  7. RITUXIMAB [Suspect]
     Active Substance: RITUXIMAB
     Dosage: R-HYPERCVAD REGIMEN (COMPLETED 8 CYCLES)
     Dates: start: 202209, end: 202305
  8. RITUXIMAB [Suspect]
     Active Substance: RITUXIMAB
     Dosage: R-HYPERCVAD REGIMEN (COMPLETED 8 CYCLES)
     Dates: start: 202209, end: 202305
  9. CYCLOPHOSPHAMIDE [Suspect]
     Active Substance: CYCLOPHOSPHAMIDE
     Indication: B-cell type acute leukaemia
     Dosage: R-HYPERCVAD REGIMEN (COMPLETED 8 CYCLES)
     Dates: start: 202209, end: 202305
  10. CYCLOPHOSPHAMIDE [Suspect]
     Active Substance: CYCLOPHOSPHAMIDE
     Dosage: R-HYPERCVAD REGIMEN (COMPLETED 8 CYCLES)
     Dates: start: 202209, end: 202305
  11. CYCLOPHOSPHAMIDE [Suspect]
     Active Substance: CYCLOPHOSPHAMIDE
     Dosage: R-HYPERCVAD REGIMEN (COMPLETED 8 CYCLES)
     Dates: start: 202209, end: 202305
  12. CYCLOPHOSPHAMIDE [Suspect]
     Active Substance: CYCLOPHOSPHAMIDE
     Dosage: R-HYPERCVAD REGIMEN (COMPLETED 8 CYCLES)
     Dates: start: 202209, end: 202305
  13. CYCLOPHOSPHAMIDE [Suspect]
     Active Substance: CYCLOPHOSPHAMIDE
     Dosage: R-HYPERCVAD REGIMEN (COMPLETED 8 CYCLES)
     Dates: start: 202209, end: 202305
  14. CYCLOPHOSPHAMIDE [Suspect]
     Active Substance: CYCLOPHOSPHAMIDE
     Dosage: R-HYPERCVAD REGIMEN (COMPLETED 8 CYCLES)
     Dates: start: 202209, end: 202305
  15. CYCLOPHOSPHAMIDE [Suspect]
     Active Substance: CYCLOPHOSPHAMIDE
     Dosage: R-HYPERCVAD REGIMEN (COMPLETED 8 CYCLES)
     Dates: start: 202209, end: 202305
  16. CYCLOPHOSPHAMIDE [Suspect]
     Active Substance: CYCLOPHOSPHAMIDE
     Dosage: R-HYPERCVAD REGIMEN (COMPLETED 8 CYCLES)
     Dates: start: 202209, end: 202305
  17. VINCRISTINE [Suspect]
     Active Substance: VINCRISTINE
     Indication: B-cell type acute leukaemia
     Dosage: R-HYPERCVAD REGIMEN (COMPLETED 8 CYCLES)
     Dates: start: 202209, end: 202305
  18. VINCRISTINE [Suspect]
     Active Substance: VINCRISTINE
     Dosage: R-HYPERCVAD REGIMEN (COMPLETED 8 CYCLES)
     Dates: start: 202209, end: 202305
  19. VINCRISTINE [Suspect]
     Active Substance: VINCRISTINE
     Dosage: R-HYPERCVAD REGIMEN (COMPLETED 8 CYCLES)
     Dates: start: 202209, end: 202305
  20. VINCRISTINE [Suspect]
     Active Substance: VINCRISTINE
     Dosage: R-HYPERCVAD REGIMEN (COMPLETED 8 CYCLES)
     Dates: start: 202209, end: 202305
  21. VINCRISTINE [Suspect]
     Active Substance: VINCRISTINE
     Dosage: R-HYPERCVAD REGIMEN (COMPLETED 8 CYCLES)
     Dates: start: 202209, end: 202305
  22. VINCRISTINE [Suspect]
     Active Substance: VINCRISTINE
     Dosage: R-HYPERCVAD REGIMEN (COMPLETED 8 CYCLES)
     Dates: start: 202209, end: 202305
  23. VINCRISTINE [Suspect]
     Active Substance: VINCRISTINE
     Dosage: R-HYPERCVAD REGIMEN (COMPLETED 8 CYCLES)
     Dates: start: 202209, end: 202305
  24. VINCRISTINE [Suspect]
     Active Substance: VINCRISTINE
     Dosage: R-HYPERCVAD REGIMEN (COMPLETED 8 CYCLES)
     Dates: start: 202209, end: 202305
  25. DOXORUBICIN [Suspect]
     Active Substance: DOXORUBICIN
     Indication: B-cell type acute leukaemia
     Dosage: R-HYPERCVAD REGIMEN (COMPLETED 8 CYCLES)
     Dates: start: 202209, end: 202305
  26. DOXORUBICIN [Suspect]
     Active Substance: DOXORUBICIN
     Dosage: R-HYPERCVAD REGIMEN (COMPLETED 8 CYCLES)
     Dates: start: 202209, end: 202305
  27. DOXORUBICIN [Suspect]
     Active Substance: DOXORUBICIN
     Dosage: R-HYPERCVAD REGIMEN (COMPLETED 8 CYCLES)
     Dates: start: 202209, end: 202305
  28. DOXORUBICIN [Suspect]
     Active Substance: DOXORUBICIN
     Dosage: R-HYPERCVAD REGIMEN (COMPLETED 8 CYCLES)
     Dates: start: 202209, end: 202305
  29. DOXORUBICIN [Suspect]
     Active Substance: DOXORUBICIN
     Dosage: R-HYPERCVAD REGIMEN (COMPLETED 8 CYCLES)
     Dates: start: 202209, end: 202305
  30. DOXORUBICIN [Suspect]
     Active Substance: DOXORUBICIN
     Dosage: R-HYPERCVAD REGIMEN (COMPLETED 8 CYCLES)
     Dates: start: 202209, end: 202305
  31. DOXORUBICIN [Suspect]
     Active Substance: DOXORUBICIN
     Dosage: R-HYPERCVAD REGIMEN (COMPLETED 8 CYCLES)
     Dates: start: 202209, end: 202305
  32. DOXORUBICIN [Suspect]
     Active Substance: DOXORUBICIN
     Dosage: R-HYPERCVAD REGIMEN (COMPLETED 8 CYCLES)
     Dates: start: 202209, end: 202305
  33. DEXAMETHASONE [Suspect]
     Active Substance: DEXAMETHASONE
     Indication: B-cell type acute leukaemia
     Dosage: R-HYPERCVAD REGIMEN (COMPLETED 8 CYCLES)
     Dates: start: 202209, end: 202305
  34. DEXAMETHASONE [Suspect]
     Active Substance: DEXAMETHASONE
     Dosage: R-HYPERCVAD REGIMEN (COMPLETED 8 CYCLES)
     Dates: start: 202209, end: 202305
  35. DEXAMETHASONE [Suspect]
     Active Substance: DEXAMETHASONE
     Dosage: R-HYPERCVAD REGIMEN (COMPLETED 8 CYCLES)
     Dates: start: 202209, end: 202305
  36. DEXAMETHASONE [Suspect]
     Active Substance: DEXAMETHASONE
     Dosage: R-HYPERCVAD REGIMEN (COMPLETED 8 CYCLES)
     Dates: start: 202209, end: 202305
  37. DEXAMETHASONE [Suspect]
     Active Substance: DEXAMETHASONE
     Dosage: R-HYPERCVAD REGIMEN (COMPLETED 8 CYCLES)
     Dates: start: 202209, end: 202305
  38. DEXAMETHASONE [Suspect]
     Active Substance: DEXAMETHASONE
     Dosage: R-HYPERCVAD REGIMEN (COMPLETED 8 CYCLES)
     Dates: start: 202209, end: 202305
  39. DEXAMETHASONE [Suspect]
     Active Substance: DEXAMETHASONE
     Dosage: R-HYPERCVAD REGIMEN (COMPLETED 8 CYCLES)
     Dates: start: 202209, end: 202305
  40. DEXAMETHASONE [Suspect]
     Active Substance: DEXAMETHASONE
     Dosage: R-HYPERCVAD REGIMEN (COMPLETED 8 CYCLES)
     Dates: start: 202209, end: 202305
  41. METHOTREXATE [Suspect]
     Active Substance: METHOTREXATE
     Indication: B-cell type acute leukaemia
     Dosage: UNK
     Route: 037
     Dates: start: 202209, end: 202305
  42. CYTARABINE [Suspect]
     Active Substance: CYTARABINE
     Indication: B-cell type acute leukaemia
     Dosage: UNK
     Route: 037
     Dates: start: 202209, end: 202305

REACTIONS (2)
  - Therapy partial responder [Unknown]
  - Intentional product use issue [Unknown]
